FAERS Safety Report 20098165 (Version 1)
Quarter: 2021Q4

REPORT INFORMATION
  Report Type: Spontaneous
  Country: CA (occurrence: CA)
  Receive Date: 20211122
  Receipt Date: 20211122
  Transmission Date: 20220303
  Serious: Yes (Hospitalization)
  Sender: FDA-Public Use
  Company Number: CA-PFIZER INC-202101555284

PATIENT
  Age: 71 Year
  Sex: Female
  Weight: 52 kg

DRUGS (23)
  1. OXALIPLATIN [Suspect]
     Active Substance: OXALIPLATIN
     Indication: Neoplasm malignant
     Dosage: 40 MG
  2. OXALIPLATIN [Suspect]
     Active Substance: OXALIPLATIN
     Indication: Hyperthermic chemotherapy
  3. MITOMYCIN [Suspect]
     Active Substance: MITOMYCIN
     Indication: Neoplasm malignant
     Dosage: 40 MG
  4. MITOMYCIN [Suspect]
     Active Substance: MITOMYCIN
     Indication: Hyperthermic chemotherapy
  5. ACETAMINOPHEN [Concomitant]
     Active Substance: ACETAMINOPHEN
  6. BENZOCAINE [Concomitant]
     Active Substance: BENZOCAINE
  7. BUPIVACAINE [Concomitant]
     Active Substance: BUPIVACAINE
  8. CLONAZEPAM [Concomitant]
     Active Substance: CLONAZEPAM
  9. DIMENHYDRINATE [Concomitant]
     Active Substance: DIMENHYDRINATE
  10. FILGRASTIM [Concomitant]
     Active Substance: FILGRASTIM
  11. HEPARIN SODIUM [Concomitant]
     Active Substance: HEPARIN SODIUM
  12. HYDROMORPHONE [Concomitant]
     Active Substance: HYDROMORPHONE
  13. LANSOPRAZOLE [Concomitant]
     Active Substance: LANSOPRAZOLE
  14. MAGNESIUM SULFATE [Concomitant]
     Active Substance: MAGNESIUM SULFATE
     Route: 042
  15. METOCLOPRAMIDE [Concomitant]
     Active Substance: METOCLOPRAMIDE
  16. MORPHINE [Concomitant]
     Active Substance: MORPHINE
  17. NALOXONE [Concomitant]
     Active Substance: NALOXONE
  18. NOREPINEPHRINE [Concomitant]
     Active Substance: NOREPINEPHRINE
  19. NUBAIN [Concomitant]
     Active Substance: NALBUPHINE HYDROCHLORIDE
  20. ONDANSETRON [Concomitant]
     Active Substance: ONDANSETRON
  21. PHYTONADIONE [Concomitant]
     Active Substance: PHYTONADIONE
  22. POTASSIUM CHLORIDE [Concomitant]
     Active Substance: POTASSIUM CHLORIDE
  23. POTASSIUM PHOSPHATES [Concomitant]
     Active Substance: POTASSIUM PHOSPHATE, DIBASIC\POTASSIUM PHOSPHATE, MONOBASIC

REACTIONS (2)
  - Escherichia urinary tract infection [Recovered/Resolved]
  - Febrile neutropenia [Recovered/Resolved]
